FAERS Safety Report 9922385 (Version 3)
Quarter: 2014Q2

REPORT INFORMATION
  Report Type: Spontaneous
  Country: US (occurrence: US)
  Receive Date: 20140225
  Receipt Date: 20140416
  Transmission Date: 20141212
  Serious: Yes (Other)
  Sender: FDA-Public Use
  Company Number: PHEH2014US003740

PATIENT
  Sex: Male

DRUGS (2)
  1. TRILEPTAL [Suspect]
     Dosage: 300 MG, QD
  2. TRILEPTAL [Suspect]
     Dosage: 300 MG

REACTIONS (2)
  - Convulsion [Unknown]
  - Rash [Unknown]
